FAERS Safety Report 7042830-6 (Version None)
Quarter: 2010Q4

REPORT INFORMATION
  Report Type: 
  Country: None (occurrence: None)
  Receive Date: 20101013
  Receipt Date: 20100525
  Transmission Date: 20110411
  Serious: No
  Sender: FDA-Public Use
  Company Number: US-ASTRAZENECA-2010SE23843

PATIENT
  Age: 55 Year
  Sex: Male

DRUGS (5)
  1. SYMBICORT [Suspect]
     Indication: CHRONIC OBSTRUCTIVE PULMONARY DISEASE
     Route: 055
  2. OMEPRAZOLE [Concomitant]
  3. SIMVASTATIN [Concomitant]
  4. IPRATROPIUM BROMIDE [Concomitant]
  5. GLIPIZIDE [Concomitant]

REACTIONS (1)
  - DRUG INTOLERANCE [None]
